FAERS Safety Report 25255161 (Version 1)
Quarter: 2025Q2

REPORT INFORMATION
  Report Type: Spontaneous
  Country: US (occurrence: US)
  Receive Date: 20250430
  Receipt Date: 20250430
  Transmission Date: 20250717
  Serious: No
  Sender: GLENMARK
  Company Number: US-GLENMARK PHARMACEUTICALS-2024GMK094438

PATIENT

DRUGS (1)
  1. IMIQUIMOD [Suspect]
     Active Substance: IMIQUIMOD
     Indication: Basal cell carcinoma
     Route: 061

REACTIONS (7)
  - Oral pain [Recovering/Resolving]
  - Mouth swelling [Recovering/Resolving]
  - Stomatitis [Recovering/Resolving]
  - Oral mucosal blistering [Recovering/Resolving]
  - Oral discomfort [Recovering/Resolving]
  - Product use issue [Unknown]
  - Drug effective for unapproved indication [Unknown]
